FAERS Safety Report 7450632-1 (Version None)
Quarter: 2011Q2

REPORT INFORMATION
  Report Type: 
  Country: None (occurrence: None)
  Receive Date: 20110429
  Receipt Date: 20110429
  Transmission Date: 20111010
  Serious: Yes (Disabling)
  Sender: FDA-Public Use
  Company Number: None

PATIENT
  Sex: Male
  Weight: 86.1834 kg

DRUGS (2)
  1. AMLODIPINE BESYLATE [Suspect]
     Indication: BLOOD PRESSURE
     Dosage: 5MG ONE DAILY
     Dates: start: 20110223, end: 20110319
  2. LISINOPRIL [Suspect]
     Dosage: 40 MG ONE DAILY
     Dates: start: 20110223, end: 20110319

REACTIONS (5)
  - DYSPNOEA [None]
  - FATIGUE [None]
  - CHEST DISCOMFORT [None]
  - DIZZINESS [None]
  - COUGH [None]
